FAERS Safety Report 7227857-3 (Version None)
Quarter: 2011Q1

REPORT INFORMATION
  Report Type: 
  Country: None (occurrence: None)
  Receive Date: 20110114
  Receipt Date: 20110106
  Transmission Date: 20110831
  Serious: Yes (Hospitalization)
  Sender: FDA-Public Use
  Company Number: GB-MERCK-1101GBR00037

PATIENT
  Age: 72 Year
  Sex: Female

DRUGS (3)
  1. ROPINIROLE [Suspect]
     Route: 065
  2. SINEMET [Suspect]
     Indication: PARKINSON'S DISEASE
     Route: 048
     Dates: end: 20101201
  3. SINEMET [Suspect]
     Route: 048
     Dates: start: 20101226

REACTIONS (3)
  - CONFUSIONAL STATE [None]
  - HALLUCINATION [None]
  - MOVEMENT DISORDER [None]
